FAERS Safety Report 9496636 (Version 2)
Quarter: 2013Q3

REPORT INFORMATION
  Report Type: Report from Study
  Country: DE (occurrence: DE)
  Receive Date: 20130904
  Receipt Date: 20130909
  Transmission Date: 20140515
  Serious: Yes (Life-Threatening)
  Sender: FDA-Public Use
  Company Number: DE-ASTELLAS-2013EU007462

PATIENT
  Sex: Female
  Weight: 99 kg

DRUGS (6)
  1. TACROLIMUS MR4 CAPSULES [Suspect]
     Indication: RENAL TRANSPLANT
     Dosage: 20 MG, UID/QD
     Route: 048
     Dates: start: 20110818, end: 20110818
  2. MYCOPHENOLATE MOFETIL [Suspect]
     Indication: RENAL TRANSPLANT
     Dosage: 1000 MG, UID/QD
     Route: 048
     Dates: start: 20110818, end: 20110818
  3. OMEPRAZOL                          /00661201/ [Concomitant]
     Indication: PROPHYLAXIS AGAINST GASTROINTESTINAL ULCER
     Dosage: 20 MG, UID/QD
     Route: 048
     Dates: start: 20070913, end: 20110818
  4. LEVODOPA [Concomitant]
     Indication: RESTLESS LEGS SYNDROME
     Dosage: 200 MG, UID/QD
     Route: 048
     Dates: start: 20070913
  5. PRAMIPEXOLE [Concomitant]
     Indication: RESTLESS LEGS SYNDROME
     Dosage: 0.18 MG, UID/QD
     Route: 048
     Dates: start: 20070913
  6. SIMVASTATIN [Concomitant]
     Indication: BLOOD CHOLESTEROL INCREASED
     Dosage: 40 MG, UID/QD
     Route: 048
     Dates: start: 20070913

REACTIONS (1)
  - Anaphylactic reaction [Recovered/Resolved]
